FAERS Safety Report 14865157 (Version 1)
Quarter: 2018Q2

REPORT INFORMATION
  Report Type: Spontaneous
  Country: US (occurrence: US)
  Receive Date: 20180508
  Receipt Date: 20180508
  Transmission Date: 20180711
  Serious: No
  Sender: FDA-Public Use
  Company Number: US-ALKERMES INC.-ALK-2017-005386

PATIENT
  Age: 34 Year
  Sex: Male

DRUGS (1)
  1. VIVITROL [Suspect]
     Active Substance: NALTREXONE
     Indication: PRODUCT USED FOR UNKNOWN INDICATION
     Dosage: 380 MG, QMO
     Route: 030

REACTIONS (7)
  - Injection site pain [Unknown]
  - Injection site mass [Unknown]
  - Injection site reaction [Unknown]
  - Amnesia [Unknown]
  - Lethargy [Unknown]
  - Abdominal discomfort [Unknown]
  - Headache [Unknown]

NARRATIVE: CASE EVENT DATE: 201710
